FAERS Safety Report 24763016 (Version 1)
Quarter: 2024Q4

REPORT INFORMATION
  Report Type: Spontaneous
  Country: US (occurrence: US)
  Receive Date: 20241222
  Receipt Date: 20241222
  Transmission Date: 20250114
  Serious: Yes (Other)
  Sender: AUROBINDO
  Company Number: US-AUROBINDO-AUR-APL-2024-062207

PATIENT
  Sex: Female

DRUGS (3)
  1. BROMOCRIPTINE MESYLATE [Suspect]
     Active Substance: BROMOCRIPTINE MESYLATE
     Indication: Prolactin-producing pituitary tumour
     Dosage: 10 MILLIGRAM, DAILY [10MG DAILY]
     Route: 048
  2. CABERGOLINE [Suspect]
     Active Substance: CABERGOLINE
     Indication: Prolactin-producing pituitary tumour
     Dosage: 0.5 MILLIGRAM [0.5 MG TWICE WEEKLY]
     Route: 048
  3. CABERGOLINE [Suspect]
     Active Substance: CABERGOLINE
     Dosage: INCREASED TO 1MG 3 TIMES WEEKLY
     Route: 048

REACTIONS (1)
  - Drug ineffective [Unknown]
